FAERS Safety Report 8606163-6 (Version None)
Quarter: 2012Q3

REPORT INFORMATION
  Report Type: 
  Country: None (occurrence: None)
  Receive Date: 20120820
  Receipt Date: 19960424
  Transmission Date: 20120928
  Serious: Yes (Other)
  Sender: FDA-Public Use
  Company Number: US-ROCHE-1101272

PATIENT
  Sex: Male

DRUGS (8)
  1. HEPARIN [Concomitant]
     Dosage: 1000 UNITS PER HOUR
     Route: 041
  2. TRIDIL [Concomitant]
  3. ACTIVASE [Suspect]
     Indication: ACUTE MYOCARDIAL INFARCTION
  4. ASPIRIN [Concomitant]
  5. HEPARIN [Concomitant]
     Dosage: 5000 UNITS
     Route: 040
  6. ZESTRIL [Concomitant]
  7. NITROGLYCERIN [Concomitant]
     Route: 060
  8. CALAN [Concomitant]

REACTIONS (1)
  - PAIN [None]
